FAERS Safety Report 8433732-9 (Version None)
Quarter: 2012Q2

REPORT INFORMATION
  Report Type: 
  Country: None (occurrence: None)
  Receive Date: 20120323
  Receipt Date: 20110726
  Transmission Date: 20120825
  Serious: Yes (Other)
  Sender: FDA-Public Use
  Company Number: 163-21880-11073195

PATIENT
  Age: 68 Year
  Sex: Male
  Weight: 87.9978 kg

DRUGS (1)
  1. REVLIMID [Suspect]
     Indication: MULTIPLE MYELOMA
     Dosage: 10 MG DAYS 1-14 OF CYCLE, PO
     Route: 048
     Dates: start: 20100126

REACTIONS (3)
  - STAPHYLOCOCCAL INFECTION [None]
  - LOCALISED INFECTION [None]
  - SEPSIS [None]
